FAERS Safety Report 5065855-9 (Version None)
Quarter: 2006Q3

REPORT INFORMATION
  Report Type: 
  Country: None (occurrence: None)
  Receive Date: 20060728
  Receipt Date: 20060728
  Transmission Date: 20061208
  Serious: No
  Sender: FDA-Public Use
  Company Number: None

PATIENT
  Sex: Female
  Weight: 9.0719 kg

DRUGS (1)
  1. BANANA BOAT SUNSCREEN FOR KIDS [Suspect]
     Dosage: PEA SIZE   1 TIME
     Dates: start: 20060526

REACTIONS (4)
  - EYE SWELLING [None]
  - LACRIMATION INCREASED [None]
  - OCULAR HYPERAEMIA [None]
  - PHARMACEUTICAL PRODUCT COMPLAINT [None]
